FAERS Safety Report 5170586-0 (Version None)
Quarter: 2006Q4

REPORT INFORMATION
  Report Type: 
  Country: None (occurrence: None)
  Receive Date: 20061205
  Receipt Date: 20061121
  Transmission Date: 20070319
  Serious: Yes (Death)
  Sender: FDA-Public Use
  Company Number: 2006118341

PATIENT
  Age: 42 Year
  Sex: Male

DRUGS (7)
  1. SUTENT [Suspect]
     Indication: GASTROINTESTINAL STROMAL TUMOUR
     Dosage: 50 MG (50 MG, 1 IN 1 D), ORAL
     Route: 048
     Dates: start: 20051214, end: 20060920
  2. POTASSIUM CHLORIDE [Concomitant]
  3. AMPICILLIN AND SULBACTAM [Concomitant]
  4. ZOLPIDEM TARTRATE [Concomitant]
  5. PANTOZOL (PANTOPRAZOLE SODIUM) [Concomitant]
  6. RAMIPRIL [Concomitant]
  7. LOCOL (FLUVASTATIN SODIUM) [Concomitant]

REACTIONS (1)
  - DEATH [None]
